FAERS Safety Report 11009458 (Version 1)
Quarter: 2015Q2

REPORT INFORMATION
  Report Type: Spontaneous
  Country: US (occurrence: None)
  Receive Date: 20150409
  Receipt Date: 20150409
  Transmission Date: 20150821
  Serious: No
  Sender: FDA-Public Use
  Company Number: None

PATIENT
  Age: 65 Year
  Sex: Male
  Weight: 108.86 kg

DRUGS (18)
  1. BISOPROLOL [Concomitant]
     Active Substance: BISOPROLOL
  2. NIACIN. [Concomitant]
     Active Substance: NIACIN
  3. NOVOLO FLEXPEN [Concomitant]
  4. OMEPRAZOLE. [Concomitant]
     Active Substance: OMEPRAZOLE
  5. AMLODIPINE [Concomitant]
     Active Substance: AMLODIPINE BESYLATE
  6. IRON [Concomitant]
     Active Substance: IRON
  7. FISH OIL [Concomitant]
     Active Substance: FISH OIL
  8. LANTUS SOLOSTAR [Suspect]
     Active Substance: INSULIN GLARGINE
     Indication: TYPE 2 DIABETES MELLITUS
     Dosage: GIVEN INTO/THE SKIN
  9. DAILY VIT. [Concomitant]
  10. VIT.D [Concomitant]
  11. CALCITRIOL. [Concomitant]
     Active Substance: CALCITRIOL
  12. LUTEIN [Concomitant]
     Active Substance: LUTEIN
  13. SETRALINE [Concomitant]
  14. LANTUS SOLOSTAR [Concomitant]
     Active Substance: INSULIN GLARGINE
  15. HYDROCHLOROT [Concomitant]
     Active Substance: HYDROCHLOROTHIAZIDE
  16. KLOR-CON [Concomitant]
     Active Substance: POTASSIUM CHLORIDE
  17. TEKTURNA [Concomitant]
     Active Substance: ALISKIREN HEMIFUMARATE
  18. ATORVASTATIN [Concomitant]
     Active Substance: ATORVASTATIN

REACTIONS (1)
  - Product use issue [None]

NARRATIVE: CASE EVENT DATE: 20150408
